FAERS Safety Report 12347300 (Version 1)
Quarter: 2016Q2

REPORT INFORMATION
  Report Type: Report from Study
  Country: NL (occurrence: NL)
  Receive Date: 20160509
  Receipt Date: 20160509
  Transmission Date: 20160815
  Serious: Yes (Other)
  Sender: FDA-Public Use
  Company Number: NL-AMGEN-NLDSL2015124467

PATIENT
  Age: 68 Year
  Sex: Male

DRUGS (7)
  1. BECLOMETASONE [Concomitant]
     Active Substance: BECLOMETHASONE DIPROPIONATE
     Route: 065
  2. XGEVA [Suspect]
     Active Substance: DENOSUMAB
     Dosage: UNK
     Route: 058
  3. PARACETAMOL [Concomitant]
     Active Substance: ACETAMINOPHEN
     Dosage: 1 G, UNK
     Route: 065
  4. XGEVA [Suspect]
     Active Substance: DENOSUMAB
     Indication: PROPHYLAXIS
     Dosage: 120 MG/ 1.70 ML, Q4WK
     Route: 058
  5. SALBUTAMOL [Concomitant]
     Active Substance: ALBUTEROL
     Route: 065
  6. XGEVA [Suspect]
     Active Substance: DENOSUMAB
     Dosage: UNK
     Route: 065
  7. XGEVA [Suspect]
     Active Substance: DENOSUMAB
     Dosage: UNK, UNK
     Route: 058

REACTIONS (9)
  - Drug interaction [Recovering/Resolving]
  - Pain in jaw [Unknown]
  - Mouth swelling [Unknown]
  - Condition aggravated [Recovering/Resolving]
  - Tooth disorder [Recovered/Resolved]
  - Toothache [Unknown]
  - Hypoaesthesia [Unknown]
  - Jaw disorder [Unknown]
  - Tooth extraction [Recovering/Resolving]

NARRATIVE: CASE EVENT DATE: 20151110
